FAERS Safety Report 11231070 (Version 1)
Quarter: 2015Q3

REPORT INFORMATION
  Report Type: Spontaneous
  Country: SE (occurrence: SE)
  Receive Date: 20150701
  Receipt Date: 20150701
  Transmission Date: 20151125
  Serious: Yes (Hospitalization)
  Sender: FDA-Public Use
  Company Number: SE-PFIZER INC-2015215664

PATIENT
  Age: 43 Year
  Sex: Female

DRUGS (1)
  1. SYNARELA [Suspect]
     Active Substance: NAFARELIN ACETATE
     Indication: ENDOMETRIOSIS
     Dosage: 200 ?G, UNK
     Route: 045
     Dates: start: 20141020, end: 20150610

REACTIONS (2)
  - Depression [Not Recovered/Not Resolved]
  - Anxiety [Not Recovered/Not Resolved]

NARRATIVE: CASE EVENT DATE: 201503
